FAERS Safety Report 21064963 (Version 1)
Quarter: 2022Q3

REPORT INFORMATION
  Report Type: Report from Study
  Country: JP (occurrence: JP)
  Receive Date: 20220711
  Receipt Date: 20220711
  Transmission Date: 20221026
  Serious: Yes (Other)
  Sender: FDA-Public Use
  Company Number: JP-JNJFOC-20220702261

PATIENT
  Sex: Male

DRUGS (2)
  1. ABIRATERONE ACETATE [Suspect]
     Active Substance: ABIRATERONE ACETATE
     Indication: Hormone-dependent prostate cancer
     Route: 048
     Dates: start: 201603, end: 202106
  2. PREDNISOLONE [Suspect]
     Active Substance: PREDNISOLONE
     Indication: Hormone-dependent prostate cancer
     Route: 065
     Dates: start: 201603, end: 202106

REACTIONS (8)
  - Hepatic function abnormal [Unknown]
  - Fatigue [Unknown]
  - Infection [Unknown]
  - Renal impairment [Unknown]
  - Oedema [Unknown]
  - Gastrointestinal disorder [Unknown]
  - Pain [Unknown]
  - Glucose tolerance impaired [Unknown]
